FAERS Safety Report 23334176 (Version 2)
Quarter: 2024Q1

REPORT INFORMATION
  Report Type: Spontaneous
  Country: US (occurrence: US)
  Receive Date: 20231223
  Receipt Date: 20240104
  Transmission Date: 20240409
  Serious: No
  Sender: FDA-Public Use
  Company Number: US-ABBVIE-5554417

PATIENT
  Age: 73 Year
  Sex: Female
  Weight: 66.224 kg

DRUGS (10)
  1. LINZESS [Suspect]
     Active Substance: LINACLOTIDE
     Indication: Irritable bowel syndrome
     Dosage: 144 MICROGRAM
     Dates: start: 202312, end: 202312
  2. LINZESS [Suspect]
     Active Substance: LINACLOTIDE
     Indication: Irritable bowel syndrome
     Dosage: STRENGTH: 144 MICROGRAM
     Route: 048
  3. LINZESS [Suspect]
     Active Substance: LINACLOTIDE
     Indication: Irritable bowel syndrome
     Dosage: 145 MICROGRAM
     Dates: start: 202311, end: 202311
  4. LINZESS [Suspect]
     Active Substance: LINACLOTIDE
     Indication: Irritable bowel syndrome
     Dosage: STRENGTH: 72 MICROGRAM
     Route: 048
     Dates: start: 2023
  5. LINZESS [Suspect]
     Active Substance: LINACLOTIDE
     Indication: Irritable bowel syndrome
     Dosage: 72 MICROGRAM
     Dates: start: 202312, end: 202312
  6. LINZESS [Suspect]
     Active Substance: LINACLOTIDE
     Indication: Irritable bowel syndrome
     Dosage: 145 MICROGRAM
     Dates: start: 20231218
  7. VITAMIN D [Concomitant]
     Active Substance: VITAMIN D NOS
     Indication: Vitamin supplementation
  8. LEVOTHYROXINE [Concomitant]
     Active Substance: LEVOTHYROXINE
     Indication: Thyroid disorder
     Dosage: 100 MICROGRAM
  9. FAMOTIDINE [Concomitant]
     Active Substance: FAMOTIDINE
     Indication: Gastrooesophageal reflux disease
     Dosage: AS NEEDED
  10. PSYLLIUM HUSK [Suspect]
     Active Substance: PSYLLIUM HUSK
     Indication: Constipation
     Dates: start: 2023, end: 202312

REACTIONS (10)
  - Frequent bowel movements [Recovered/Resolved]
  - Flatulence [Recovered/Resolved]
  - Abdominal distension [Unknown]
  - Frequent bowel movements [Recovered/Resolved]
  - Diarrhoea [Recovering/Resolving]
  - Irritable bowel syndrome [Unknown]
  - Abdominal pain upper [Recovered/Resolved]
  - Abdominal distension [Recovered/Resolved]
  - Flatulence [Recovered/Resolved]
  - Constipation [Unknown]

NARRATIVE: CASE EVENT DATE: 20230101
